FAERS Safety Report 8110850-6 (Version None)
Quarter: 2012Q1

REPORT INFORMATION
  Report Type: 
  Country: None (occurrence: None)
  Receive Date: 20120125
  Receipt Date: 20120110
  Transmission Date: 20120608
  Serious: Yes (Hospitalization)
  Sender: FDA-Public Use
  Company Number: 2012030790

PATIENT
  Sex: Female
  Weight: 86.637 kg

DRUGS (3)
  1. BACTRIM [Concomitant]
  2. VIVAGLOBIN [Suspect]
  3. BACTRIM [Suspect]

REACTIONS (2)
  - FALL [None]
  - MENINGITIS [None]
